FAERS Safety Report 15587156 (Version 2)
Quarter: 2018Q4

REPORT INFORMATION
  Report Type: Spontaneous
  Country: JP (occurrence: JP)
  Receive Date: 20181105
  Receipt Date: 20181211
  Transmission Date: 20190205
  Serious: No
  Sender: FDA-Public Use
  Company Number: JP-NXDC-GLE-0008-2018

PATIENT

DRUGS (1)
  1. ALABEL [Suspect]
     Active Substance: AMINOLEVULINIC ACID HYDROCHLORIDE
     Indication: GLIOMA
     Route: 048

REACTIONS (2)
  - Vomiting [Unknown]
  - Pyrexia [Unknown]
